FAERS Safety Report 7579440-8 (Version None)
Quarter: 2011Q2

REPORT INFORMATION
  Report Type: 
  Country: None (occurrence: None)
  Receive Date: 20110629
  Receipt Date: 20110620
  Transmission Date: 20111010
  Serious: Yes (Hospitalization)
  Sender: FDA-Public Use
  Company Number: IE-BIOGENIDEC-2011BI023393

PATIENT
  Age: 44 Year
  Sex: Female

DRUGS (2)
  1. AVONEX [Suspect]
     Indication: PRODUCT USED FOR UNKNOWN INDICATION
     Dates: start: 20110202
  2. STEROIDS [Concomitant]
     Route: 042

REACTIONS (3)
  - INFLUENZA LIKE ILLNESS [None]
  - PHOBIA [None]
  - HOSPITALISATION [None]
